FAERS Safety Report 5585170-4 (Version None)
Quarter: 2008Q1

REPORT INFORMATION
  Report Type: 
  Country: None (occurrence: None)
  Receive Date: 20080104
  Receipt Date: 20080104
  Transmission Date: 20080703
  Serious: Yes (Life-Threatening)
  Sender: FDA-Public Use
  Company Number: None

PATIENT
  Age: 36 Year
  Sex: Female
  Weight: 106.5953 kg

DRUGS (2)
  1. AMBIEN [Suspect]
     Indication: INSOMNIA
     Dosage: 10 MG TABLET BEFORE BED PO
     Route: 048
     Dates: start: 20071217, end: 20071223
  2. AMBIEN [Suspect]
     Indication: PAIN
     Dosage: 10 MG TABLET BEFORE BED PO
     Route: 048
     Dates: start: 20071217, end: 20071223

REACTIONS (5)
  - AMNESIA [None]
  - DISORIENTATION [None]
  - FALL [None]
  - INCORRECT DOSE ADMINISTERED [None]
  - SOMNAMBULISM [None]
